FAERS Safety Report 4970427-8 (Version None)
Quarter: 2006Q2

REPORT INFORMATION
  Report Type: 
  Country: None (occurrence: None)
  Receive Date: 20060412
  Receipt Date: 20060404
  Transmission Date: 20061013
  Serious: Yes (Other)
  Sender: FDA-Public Use
  Company Number: US-GILEAD-2006-0009425

PATIENT
  Age: 41 Year
  Sex: Male

DRUGS (4)
  1. HEPSERA [Suspect]
     Indication: HEPATITIS B
     Route: 048
     Dates: start: 20040301, end: 20041001
  2. NADOLOL [Concomitant]
  3. SPIRONOLACTONE [Concomitant]
  4. MULTIVITAMIN [Concomitant]

REACTIONS (5)
  - DIARRHOEA [None]
  - FATIGUE [None]
  - HEPATOMEGALY [None]
  - LACTIC ACIDOSIS [None]
  - MUSCLE SPASMS [None]
